FAERS Safety Report 7234794-7 (Version None)
Quarter: 2011Q1

REPORT INFORMATION
  Report Type: 
  Country: None (occurrence: None)
  Receive Date: 20110114
  Receipt Date: 20110114
  Transmission Date: 20110831
  Serious: Yes (Hospitalization)
  Sender: FDA-Public Use
  Company Number: None

PATIENT
  Age: 57 Year
  Sex: Female
  Weight: 79 kg

DRUGS (1)
  1. DIVALPROEX [Suspect]
     Indication: BIPOLAR I DISORDER
     Dosage: 1500 MG BID PO
     Route: 048
     Dates: start: 20100226, end: 20100813

REACTIONS (2)
  - HEPATIC ENZYME INCREASED [None]
  - DIZZINESS [None]
